FAERS Safety Report 9309661 (Version 1)
Quarter: 2013Q2

REPORT INFORMATION
  Report Type: Spontaneous
  Country: US (occurrence: US)
  Receive Date: 20130525
  Receipt Date: 20130525
  Transmission Date: 20140414
  Serious: No
  Sender: FDA-Public Use
  Company Number: US-BRISTOL-MYERS SQUIBB COMPANY-18731885

PATIENT
  Age: 55 Year
  Sex: Female

DRUGS (9)
  1. BYDUREON [Suspect]
     Indication: TYPE 2 DIABETES MELLITUS
     Route: 058
     Dates: start: 201205
  2. LANSOPRAZOLE [Concomitant]
     Route: 048
  3. CARVEDILOL [Concomitant]
     Indication: HYPERTENSION
  4. AMOXICILLIN [Concomitant]
     Indication: TOOTH ABSCESS
  5. LOVASTATIN [Concomitant]
  6. LOSARTAN POTASSIUM [Concomitant]
     Indication: HYPERTENSION
  7. AMLODIPINE [Concomitant]
     Indication: HYPERTENSION
     Route: 048
  8. VITAMIN D [Concomitant]
  9. VITAMIN C [Concomitant]

REACTIONS (1)
  - Pruritus generalised [Not Recovered/Not Resolved]
